FAERS Safety Report 15117606 (Version 3)
Quarter: 2018Q4

REPORT INFORMATION
  Report Type: Report from Study
  Country: US (occurrence: US)
  Receive Date: 20180706
  Receipt Date: 20181004
  Transmission Date: 20190204
  Serious: Yes (Hospitalization, Disabling)
  Sender: FDA-Public Use
  Company Number: US-ACTELION-A-US2017-150075

PATIENT
  Age: 82 Year
  Sex: Female
  Weight: 89.34 kg

DRUGS (2)
  1. OPSUMIT [Suspect]
     Active Substance: MACITENTAN
     Dosage: UNK
     Route: 048
  2. OPSUMIT [Suspect]
     Active Substance: MACITENTAN
     Indication: PULMONARY ARTERIAL HYPERTENSION
     Dosage: 10 MG, QD
     Route: 048
     Dates: start: 20180108

REACTIONS (18)
  - Pyrexia [Recovered/Resolved]
  - Pharyngeal mass [Recovered/Resolved]
  - Dyspnoea [Unknown]
  - Right ventricular failure [Recovered/Resolved]
  - Pulmonary hypertension [Unknown]
  - Dyspnoea exertional [Unknown]
  - Asthenia [Unknown]
  - Cardiac failure congestive [Recovered/Resolved]
  - Productive cough [Recovered/Resolved]
  - Pulmonary oedema [Unknown]
  - Oedema peripheral [Unknown]
  - Dementia [Unknown]
  - Dizziness [Recovered/Resolved]
  - Dysphagia [Unknown]
  - Oedema [Unknown]
  - Epiglottitis [Recovered/Resolved]
  - Pharyngeal abscess [Recovered/Resolved]
  - Pneumonia aspiration [Unknown]

NARRATIVE: CASE EVENT DATE: 20180504
